FAERS Safety Report 8407618-X (Version None)
Quarter: 2012Q2

REPORT INFORMATION
  Report Type: 
  Country: None (occurrence: None)
  Receive Date: 20120604
  Receipt Date: 20120523
  Transmission Date: 20120825
  Serious: Yes (Hospitalization, Other)
  Sender: FDA-Public Use
  Company Number: DE-ACTELION-A-CH2012-65054

PATIENT
  Sex: Female
  Weight: 27.5 kg

DRUGS (4)
  1. ZAVESCA [Suspect]
     Indication: NIEMANN-PICK DISEASE
     Dosage: 200 MG, TID
     Route: 048
  2. KEPPRA [Concomitant]
  3. LAMOTRIGINE [Concomitant]
  4. ZAVESCA [Suspect]
     Dosage: 50 MG, TID
     Route: 048
     Dates: start: 20100501

REACTIONS (5)
  - ERYTHEMA [None]
  - ARTHROSCOPY [None]
  - ARTHRITIS INFECTIVE [None]
  - HYPERTHERMIA [None]
  - ASPIRATION JOINT ABNORMAL [None]
